FAERS Safety Report 23544577 (Version 1)
Quarter: 2024Q1

REPORT INFORMATION
  Report Type: Spontaneous
  Country: US (occurrence: US)
  Receive Date: 20240220
  Receipt Date: 20240220
  Transmission Date: 20240410
  Serious: No
  Sender: FDA-Public Use
  Company Number: US-PERRIGO-23US007877

PATIENT
  Age: 93 Year
  Sex: Female

DRUGS (1)
  1. NAPROXEN SODIUM [Suspect]
     Active Substance: NAPROXEN\NAPROXEN SODIUM
     Indication: Pain
     Dosage: 220 MG, QD
     Route: 048

REACTIONS (5)
  - Dysgeusia [Unknown]
  - Abnormal faeces [Unknown]
  - Intestinal transit time increased [Unknown]
  - Pollakiuria [Unknown]
  - Incorrect product administration duration [Unknown]
